FAERS Safety Report 24670289 (Version 1)
Quarter: 2024Q4

REPORT INFORMATION
  Report Type: Spontaneous
  Country: VN (occurrence: VN)
  Receive Date: 20241127
  Receipt Date: 20241127
  Transmission Date: 20250115
  Serious: Yes (Death, Life-Threatening)
  Sender: ORGANON
  Company Number: VN-ORGANON-O2411VNM001851

PATIENT
  Age: 83 Year
  Sex: Female

DRUGS (1)
  1. DIPROSPAN [Suspect]
     Active Substance: BETAMETHASONE DIPROPIONATE\BETAMETHASONE SODIUM PHOSPHATE
     Dosage: UNK
     Dates: start: 20141001

REACTIONS (5)
  - Cardiac arrest [Fatal]
  - Loss of consciousness [Fatal]
  - Cyanosis [Fatal]
  - Carotid pulse decreased [Fatal]
  - Femoral pulse decreased [Fatal]

NARRATIVE: CASE EVENT DATE: 20141001
